FAERS Safety Report 8366279-9 (Version None)
Quarter: 2012Q2

REPORT INFORMATION
  Report Type: 
  Country: None (occurrence: None)
  Receive Date: 20120517
  Receipt Date: 20120511
  Transmission Date: 20120825
  Serious: Yes (Other)
  Sender: FDA-Public Use
  Company Number: PHEH2012US010059

PATIENT
  Sex: Female

DRUGS (2)
  1. ZOMETA [Suspect]
     Indication: BREAST CANCER
     Dates: start: 20110428
  2. AFINITOR [Concomitant]
     Dates: start: 20120103

REACTIONS (5)
  - NEOPLASM PROGRESSION [None]
  - FATIGUE [None]
  - LYMPHADENOPATHY [None]
  - NEOPLASM MALIGNANT [None]
  - LUNG NEOPLASM [None]
